FAERS Safety Report 8879762 (Version 1)
Quarter: 2012Q4

REPORT INFORMATION
  Report Type: 
  Country: FR (occurrence: FR)
  Receive Date: 20121031
  Receipt Date: 20121031
  Transmission Date: 20130627
  Serious: Yes (Death, Life-Threatening, Other)
  Sender: FDA-Public Use
  Company Number: FR-009507513-1206FRA00080

PATIENT
  Age: 77 Year
  Sex: Male

DRUGS (8)
  1. XELEVIA [Suspect]
     Indication: TYPE 2 DIABETES MELLITUS
     Dosage: 100 mg, qd
     Route: 048
  2. TAHOR [Suspect]
     Indication: DYSLIPIDAEMIA
     Dosage: 10 mg, qd
     Route: 048
  3. LEXOMIL [Suspect]
     Indication: ANXIETY
     Dosage: 6 mg, qd
     Route: 048
  4. IXPRIM (ACETAMINOPHEN (+) TRAMADOL HYDROCHLORIDE) [Suspect]
     Indication: PAIN
     Dosage: UNK UNK, PRN
     Route: 048
     Dates: start: 201111
  5. COAPROVEL [Suspect]
     Indication: HYPERTENSION
     Dosage: 300 mg-12.5
     Route: 048
  6. AMAREL [Suspect]
     Indication: TYPE 2 DIABETES MELLITUS
     Dosage: 4 mg, qd
     Route: 048
  7. GLUCOPHAGE [Suspect]
     Indication: TYPE 2 DIABETES MELLITUS
     Dosage: 1000 mg, qd
     Route: 048
  8. OMEPRAZOLE [Suspect]
     Indication: GASTROOESOPHAGEAL REFLUX DISEASE
     Dosage: 1 DF, qd
     Route: 048

REACTIONS (1)
  - Pancreatic carcinoma [Fatal]
